FAERS Safety Report 12230917 (Version 4)
Quarter: 2016Q2

REPORT INFORMATION
  Report Type: Spontaneous
  Country: JP (occurrence: JP)
  Receive Date: 20160401
  Receipt Date: 20160527
  Transmission Date: 20160815
  Serious: Yes (Hospitalization, Disabling, Other)
  Sender: FDA-Public Use
  Company Number: JP-BRISTOL-MYERS SQUIBB COMPANY-BMS-2016-023931

PATIENT
  Age: 62 Year
  Sex: Male
  Weight: 52.8 kg

DRUGS (9)
  1. FEBURIC [Concomitant]
     Active Substance: FEBUXOSTAT
     Indication: HYPERURICAEMIA
     Dosage: 10 MG, UNK
     Route: 048
  2. FAMOTIDINE. [Concomitant]
     Active Substance: FAMOTIDINE
     Indication: PRODUCT USED FOR UNKNOWN INDICATION
     Dosage: 20 MG, UNK
     Route: 048
  3. TRADJENTA [Concomitant]
     Active Substance: LINAGLIPTIN
     Indication: DIABETES MELLITUS
     Dosage: 5 MG, UNK
     Route: 048
  4. CANDESARTAN CILEXETIL. [Concomitant]
     Active Substance: CANDESARTAN CILEXETIL
     Indication: HYPERTENSION
     Dosage: 2 MG, UNK
     Route: 048
  5. ELIQUIS [Suspect]
     Active Substance: APIXABAN
     Indication: CEREBROVASCULAR ACCIDENT PROPHYLAXIS
     Dosage: 2.5 MG, BID
     Route: 048
     Dates: end: 20160129
  6. PRAVASTATIN [Concomitant]
     Active Substance: PRAVASTATIN\PRAVASTATIN SODIUM
     Indication: DYSLIPIDAEMIA
     Dosage: 5 MG, UNK
     Route: 048
  7. KREMEZIN [Concomitant]
     Active Substance: ACTIVATED CHARCOAL
     Indication: CHRONIC KIDNEY DISEASE
     Dosage: 2 G, UNK
     Route: 048
  8. BETANIS [Concomitant]
     Active Substance: MIRABEGRON
     Indication: BENIGN PROSTATIC HYPERPLASIA
     Dosage: 50 MG, UNK
     Route: 048
  9. LASIX [Concomitant]
     Active Substance: FUROSEMIDE
     Indication: CARDIAC FAILURE CONGESTIVE
     Dosage: 20 MG, UNK
     Route: 048

REACTIONS (1)
  - Haemorrhagic cerebral infarction [Recovered/Resolved with Sequelae]

NARRATIVE: CASE EVENT DATE: 20160129
